FAERS Safety Report 21930946 (Version 1)
Quarter: 2023Q1

REPORT INFORMATION
  Report Type: Spontaneous
  Country: US (occurrence: None)
  Receive Date: 20230130
  Receipt Date: 20230130
  Transmission Date: 20230417
  Serious: No
  Sender: FDA-Public Use
  Company Number: None

PATIENT
  Age: 71 Year
  Sex: Female
  Weight: 79.38 kg

DRUGS (1)
  1. TYLENOL [Suspect]
     Active Substance: ACETAMINOPHEN

REACTIONS (4)
  - Expired product administered [None]
  - Cholelithiasis [None]
  - Hepatic enzyme increased [None]
  - Chromaturia [None]

NARRATIVE: CASE EVENT DATE: 20160512
